FAERS Safety Report 25423615 (Version 1)
Quarter: 2025Q2

REPORT INFORMATION
  Report Type: Spontaneous
  Country: US (occurrence: None)
  Receive Date: 20250610
  Receipt Date: 20250610
  Transmission Date: 20250716
  Serious: No
  Sender: FDA-CTU
  Company Number: None

PATIENT
  Age: 60 Year
  Sex: Female
  Weight: 83 kg

DRUGS (4)
  1. GAMUNEX-C [Suspect]
     Active Substance: HUMAN IMMUNOGLOBULIN G
     Indication: Chronic inflammatory demyelinating polyradiculoneuropathy
     Dosage: FREQUENCY : DAILY;?
     Route: 041
     Dates: start: 20250606
  2. ONDASETRON 4MG IV [Concomitant]
     Dates: start: 20250606
  3. TYLENOL 650MG [Concomitant]
     Dates: start: 20250606
  4. BENADRYL 50MG PO [Concomitant]
     Dates: start: 20250606

REACTIONS (1)
  - Urticaria [None]

NARRATIVE: CASE EVENT DATE: 20250606
